FAERS Safety Report 4907183-5 (Version None)
Quarter: 2006Q1

REPORT INFORMATION
  Report Type: 
  Country: None (occurrence: None)
  Receive Date: 20060207
  Receipt Date: 20060123
  Transmission Date: 20060701
  Serious: Yes (Death, Hospitalization)
  Sender: FDA-Public Use
  Company Number: US200512001345

PATIENT
  Age: 74 Year
  Sex: Female
  Weight: 102 kg

DRUGS (4)
  1. SYMBYAX [Suspect]
     Indication: BIPOLAR DISORDER
     Dosage: 6/25
     Dates: start: 20040101, end: 20051101
  2. ZYPREXA [Concomitant]
  3. ABILIFY [Concomitant]
  4. (ARIPIPRAZOLE) [Concomitant]

REACTIONS (6)
  - CATATONIA [None]
  - COMA [None]
  - CONFUSIONAL STATE [None]
  - HYPONATRAEMIA [None]
  - RESPIRATORY FAILURE [None]
  - WEIGHT INCREASED [None]
